FAERS Safety Report 5813761-1 (Version None)
Quarter: 2008Q3

REPORT INFORMATION
  Report Type: 
  Country: None (occurrence: None)
  Receive Date: 20080717
  Receipt Date: 20080709
  Transmission Date: 20090109
  Serious: Yes (Other)
  Sender: FDA-Public Use
  Company Number: PHFR2007GB03275

PATIENT
  Sex: Female
  Weight: 75 kg

DRUGS (4)
  1. CLOZARIL [Suspect]
     Indication: SCHIZOPHRENIA
     Dosage: 550MG DAILY
     Route: 048
     Dates: start: 19950726
  2. CALCICHEW [Concomitant]
     Indication: OSTEOPOROSIS
     Route: 065
  3. CODEINE PHOSPHATE [Concomitant]
     Indication: BACK PAIN
     Dosage: 30 MG, QID
     Route: 065
  4. ALBUTEROL [Concomitant]
     Dosage: UNK, QID

REACTIONS (11)
  - BODY TEMPERATURE INCREASED [None]
  - BREAST CANCER [None]
  - CHEST DISCOMFORT [None]
  - LOWER RESPIRATORY TRACT INFECTION [None]
  - MASTECTOMY [None]
  - RESPIRATORY RATE INCREASED [None]
  - TACHYCARDIA [None]
  - TONIC CLONIC MOVEMENTS [None]
  - TREMOR [None]
  - WHEEZING [None]
  - WOUND INFECTION [None]
